FAERS Safety Report 5778553-0 (Version None)
Quarter: 2008Q2

REPORT INFORMATION
  Report Type: 
  Country: None (occurrence: None)
  Receive Date: 20080617
  Receipt Date: 20080605
  Transmission Date: 20081010
  Serious: Yes (Hospitalization)
  Sender: FDA-Public Use
  Company Number: 117732

PATIENT
  Age: 28 Year
  Sex: Female
  Weight: 54.4316 kg

DRUGS (9)
  1. AVONEX [Suspect]
     Indication: MULTIPLE SCLEROSIS
     Dosage: 30 UG; QW; IM
     Route: 030
     Dates: start: 19960901
  2. CLINORIL [Concomitant]
  3. PAXIL [Concomitant]
  4. AMANTADINE HCL [Concomitant]
  5. ANAFRANIL [Concomitant]
  6. CLINORIL [Concomitant]
  7. PAXIL [Concomitant]
  8. AMANTADINE HCL [Concomitant]
  9. ANAFRANIL [Concomitant]

REACTIONS (3)
  - GRAND MAL CONVULSION [None]
  - INFLUENZA LIKE ILLNESS [None]
  - MULTIPLE SCLEROSIS RELAPSE [None]
